FAERS Safety Report 24189850 (Version 1)
Quarter: 2024Q3

REPORT INFORMATION
  Report Type: Spontaneous
  Country: US (occurrence: US)
  Receive Date: 20240808
  Receipt Date: 20240808
  Transmission Date: 20241017
  Serious: No
  Sender: TARO
  Company Number: US-TARO PHARMACEUTICALS USA INC.-2024TAR00977

PATIENT
  Age: 13 Year
  Sex: Male

DRUGS (1)
  1. ADAPALENE [Suspect]
     Active Substance: ADAPALENE
     Indication: Rash
     Dosage: UNK, DAILY
     Route: 061
     Dates: start: 202402, end: 202405

REACTIONS (4)
  - Sensitive skin [Recovered/Resolved]
  - Rash [Recovered/Resolved]
  - Erythema [Recovered/Resolved]
  - Hypersensitivity [Recovered/Resolved]

NARRATIVE: CASE EVENT DATE: 20240201
